FAERS Safety Report 6198144-X (Version None)
Quarter: 2009Q2

REPORT INFORMATION
  Report Type: 
  Country: None (occurrence: None)
  Receive Date: 20090521
  Receipt Date: 20090514
  Transmission Date: 20091009
  Serious: Yes (Hospitalization)
  Sender: FDA-Public Use
  Company Number: FR-ROCHE-621435

PATIENT
  Sex: Female
  Weight: 70 kg

DRUGS (11)
  1. BONIVA [Suspect]
     Indication: OSTEOPENIA
     Route: 048
     Dates: start: 20090308, end: 20090308
  2. STAGID [Concomitant]
     Dosage: DRUG: STAGID 700.
     Route: 048
  3. ZESTRIL [Concomitant]
     Indication: HYPERTENSION
     Dosage: DRUG: ZESTRIL 20.
     Route: 048
  4. TEMERIT [Concomitant]
     Indication: HYPERTENSION
     Dosage: DRUG: TEMERIT 5.
     Route: 048
  5. LANZOR [Concomitant]
     Dosage: DRUG: LANZOR 30.
     Route: 048
  6. LYRICA [Concomitant]
     Dosage: DRUG: LYRICA 150.
     Route: 048
  7. LANTUS [Concomitant]
     Dosage: DRUG: LANTUS SC.
     Route: 058
  8. DICETEL [Concomitant]
     Dosage: DRUG: DIECTEL 100.
  9. APIDRA [Concomitant]
  10. CACIT [Concomitant]
     Dosage: DRUG: CACIT 1000.
  11. DEBRIDAT [Concomitant]
     Dosage: DRUG: DEBRIDAT 100.

REACTIONS (4)
  - BONE PAIN [None]
  - HYPERTENSION [None]
  - MUSCULOSKELETAL CHEST PAIN [None]
  - MYALGIA [None]
